FAERS Safety Report 4570599-3 (Version None)
Quarter: 2005Q1

REPORT INFORMATION
  Report Type: 
  Country: None (occurrence: None)
  Receive Date: 20050204
  Receipt Date: 20041124
  Transmission Date: 20050727
  Serious: Yes (Other)
  Sender: FDA-Public Use
  Company Number: GB-GLAXOSMITHKLINE-B0358059A

PATIENT
  Age: 66 Year
  Sex: Female

DRUGS (4)
  1. FLIXOTIDE [Suspect]
     Indication: ASTHMA
     Dosage: 125U UNKNOWN
     Route: 065
     Dates: start: 20011024
  2. ALBUTEROL [Concomitant]
     Indication: ASTHMA
     Route: 065
     Dates: start: 20011002
  3. CALMURID [Concomitant]
     Indication: STASIS DERMATITIS
     Route: 061
     Dates: start: 20040923
  4. ISOPROPYL MYRISTATE [Concomitant]
     Route: 061
     Dates: start: 20040629

REACTIONS (1)
  - RETINOPATHY [None]
